FAERS Safety Report 6879542-5 (Version None)
Quarter: 2010Q3

REPORT INFORMATION
  Report Type: 
  Country: None (occurrence: None)
  Receive Date: 20100728
  Receipt Date: 20100713
  Transmission Date: 20110219
  Serious: Yes (Other)
  Sender: FDA-Public Use
  Company Number: PHHY2010US40038

PATIENT
  Sex: Female
  Weight: 180 kg

DRUGS (10)
  1. RECLAST [Suspect]
     Indication: OSTEOPOROSIS
     Dosage: 5MG/YEAR
     Route: 042
     Dates: start: 20091229, end: 20091229
  2. SODIUM [Concomitant]
     Dosage: 125MG
  3. LISINOPRIL [Concomitant]
     Dosage: 10MG
  4. LISINOPRIL [Concomitant]
     Dosage: 12.5MG
  5. DARVOCET-N 100 [Concomitant]
     Dosage: 100 MG, TID
  6. ALPRAZOLAM [Concomitant]
  7. LEVOTHYROXINE [Concomitant]
  8. CALCIUM [Concomitant]
  9. VITAMIN D [Concomitant]
     Dosage: 50000 U, QW
  10. MOBI [Concomitant]
     Dosage: 15 MG, QD

REACTIONS (3)
  - BONE PAIN [None]
  - NEPHROLITHIASIS [None]
  - OSTEOARTHRITIS [None]
